FAERS Safety Report 5243182-4 (Version None)
Quarter: 2007Q1

REPORT INFORMATION
  Report Type: 
  Country: None (occurrence: None)
  Receive Date: 20070215
  Receipt Date: 20070201
  Transmission Date: 20070707
  Serious: Yes (Hospitalization)
  Sender: FDA-Public Use
  Company Number: B0457815A

PATIENT
  Age: 17 Year
  Sex: Male

DRUGS (5)
  1. LITHIUM SALT (FORMULATION UNKNOWN) (LITHIUM SALT) [Suspect]
  2. CLOZAPINE [Suspect]
     Dosage: 150 MG / UNKNOWN / UNKNOWN
  3. THORAZINE [Suspect]
     Dosage: 100 MG / UNKNOWN / UNKNOWN
  4. CLONAZEPAM [Concomitant]
  5. BENZHEXOL [Concomitant]

REACTIONS (10)
  - AGGRESSION [None]
  - ANOREXIA [None]
  - DELUSION OF GRANDEUR [None]
  - LABILE BLOOD PRESSURE [None]
  - MANIA [None]
  - NEUROLEPTIC MALIGNANT SYNDROME [None]
  - PALLOR [None]
  - PARANOIA [None]
  - PULSE ABNORMAL [None]
  - RESTLESSNESS [None]
